FAERS Safety Report 8086727-1 (Version None)
Quarter: 2012Q1

REPORT INFORMATION
  Report Type: 
  Country: None (occurrence: None)
  Receive Date: 20120128
  Receipt Date: 20110613
  Transmission Date: 20120608
  Serious: No
  Sender: FDA-Public Use
  Company Number: US-ABBOTT-11P-163-0731986-00

PATIENT
  Age: 69 Year
  Sex: Female

DRUGS (12)
  1. HUMIRA [Suspect]
     Indication: PSORIASIS
     Dates: start: 20080101
  2. ZETIA [Concomitant]
     Indication: BLOOD CHOLESTEROL INCREASED
  3. ASPIRIN [Concomitant]
     Indication: HYPERTENSION
  4. OMEPRAZOLE [Concomitant]
     Indication: GASTROOESOPHAGEAL REFLUX DISEASE
  5. NADOLOL [Concomitant]
     Indication: HEART RATE IRREGULAR
  6. ASPIRIN [Concomitant]
     Indication: BLOOD CHOLESTEROL
  7. CITALOPRAM [Concomitant]
     Indication: DEPRESSION
  8. SIMVASTATIN [Concomitant]
     Indication: BLOOD CHOLESTEROL INCREASED
  9. AMLO-BENAZEPRIL [Concomitant]
     Indication: HYPERTENSION
     Dosage: 5/20MG
  10. VIT C [Concomitant]
     Indication: VITAMIN SUPPLEMENTATION
  11. LEVOXYL [Concomitant]
     Indication: HYPOTHYROIDISM
  12. VITAMIN D [Concomitant]
     Indication: VITAMIN SUPPLEMENTATION

REACTIONS (1)
  - UPPER RESPIRATORY TRACT INFECTION [None]
